FAERS Safety Report 9032404 (Version 3)
Quarter: 2013Q2

REPORT INFORMATION
  Report Type: Spontaneous
  Country: US (occurrence: US)
  Receive Date: 20130122
  Receipt Date: 20130509
  Transmission Date: 20140414
  Serious: Yes (Death)
  Sender: FDA-Public Use
  Company Number: US-PFIZER INC-2013022406

PATIENT
  Age: 60 Year
  Sex: Female

DRUGS (4)
  1. XALKORI [Suspect]
     Indication: LUNG NEOPLASM MALIGNANT
     Dosage: 250 MG, 2X/DAY
     Route: 048
     Dates: start: 20121210, end: 20130428
  2. XALKORI [Interacting]
     Dosage: 250 MG, 2X/DAY
     Route: 048
     Dates: start: 20121211, end: 20130116
  3. XALKORI [Interacting]
     Dosage: 200 MG, 2X/DAY
     Route: 048
     Dates: start: 20130213
  4. ZOMETA [Interacting]
     Dosage: UNK

REACTIONS (7)
  - Death [Fatal]
  - Drug interaction [Unknown]
  - Dizziness [Recovering/Resolving]
  - Disorientation [Recovering/Resolving]
  - Hypoaesthesia oral [Recovering/Resolving]
  - Nausea [Unknown]
  - Constipation [Unknown]
